FAERS Safety Report 8816779 (Version 1)
Quarter: 2012Q4

REPORT INFORMATION
  Report Type: Spontaneous
  Country: US (occurrence: None)
  Receive Date: 20121001
  Receipt Date: 20121001
  Transmission Date: 20130627
  Serious: Yes (Hospitalization)
  Sender: FDA-Public Use
  Company Number: ENT 2012-0126

PATIENT
  Sex: Female

DRUGS (2)
  1. COMTAN (COMTESS) (ENTACAPONE) [Suspect]
     Dates: start: 2012
  2. STALEVO (LEVODOPA, CARBIDOPA, ENTACAPONE) [Suspect]

REACTIONS (1)
  - Pancreatitis [None]
